FAERS Safety Report 6372124-3 (Version None)
Quarter: 2009Q3

REPORT INFORMATION
  Report Type: 
  Country: None (occurrence: None)
  Receive Date: 20090917
  Receipt Date: 20090901
  Transmission Date: 20100115
  Serious: Yes (Other)
  Sender: FDA-Public Use
  Company Number: B0592940A

PATIENT
  Age: 54 Year
  Sex: 0

DRUGS (6)
  1. LAMIVUDINE [Suspect]
     Indication: HIV INFECTION
  2. DIDANOSINE [Suspect]
     Indication: HIV INFECTION
  3. TENOFOVIR DISOPROXIL FUMARATE [Concomitant]
     Indication: HIV INFECTION
  4. RITONAVIR [Suspect]
     Indication: HIV INFECTION
  5. NEVIRAPINE [Suspect]
     Indication: HIV INFECTION
  6. ATAZANAVIR [Suspect]
     Indication: HIV INFECTION

REACTIONS (2)
  - ORGANISING PNEUMONIA [None]
  - PNEUMOCYSTIS JIROVECI PNEUMONIA [None]
